FAERS Safety Report 23351289 (Version 1)
Quarter: 2023Q4

REPORT INFORMATION
  Report Type: Spontaneous
  Country: US (occurrence: US)
  Receive Date: 20231229
  Receipt Date: 20231229
  Transmission Date: 20240110
  Serious: Yes (Other)
  Sender: FDA-Public Use
  Company Number: US-ALCON LABORATORIES-ALC2023US005784

PATIENT
  Age: 72 Year
  Sex: Male

DRUGS (15)
  1. BSS [Suspect]
     Active Substance: CALCIUM CHLORIDE\MAGNESIUM CHLORIDE\POTASSIUM CHLORIDE\SODIUM ACETATE\SODIUM CHLORIDE\SODIUM CITRATE
     Indication: Cataract operation
     Dosage: UNK
     Route: 047
  2. BSS [Suspect]
     Active Substance: CALCIUM CHLORIDE\MAGNESIUM CHLORIDE\POTASSIUM CHLORIDE\SODIUM ACETATE\SODIUM CHLORIDE\SODIUM CITRATE
     Indication: Intraocular lens implant
  3. BETADINE [Suspect]
     Active Substance: POVIDONE-IODINE
     Indication: Surgery
     Dosage: UNK
     Route: 061
  4. CEFTAZIDIME [Concomitant]
     Active Substance: CEFTAZIDIME
     Indication: Product used for unknown indication
     Dosage: UNK
     Route: 031
  5. DEXAMETHASONE [Concomitant]
     Active Substance: DEXAMETHASONE
     Indication: Product used for unknown indication
     Dosage: UNK
     Route: 031
  6. KETOROLAC [Concomitant]
     Active Substance: KETOROLAC TROMETHAMINE
     Indication: Postoperative care
     Dosage: UNK, QID RIGHT EYE
     Route: 047
  7. LIDOCAINE [Concomitant]
     Active Substance: LIDOCAINE
     Indication: Preoperative care
     Dosage: RIGHT EYE
     Route: 065
  8. MOXIFLOXACIN [Concomitant]
     Active Substance: MOXIFLOXACIN
     Indication: Subconjunctival injection procedure
     Dosage: RIGHT EYE
     Route: 065
  9. OFLOXACIN [Concomitant]
     Active Substance: OFLOXACIN
     Indication: Postoperative care
     Dosage: UNK, QID RIGHT EYE
     Route: 047
  10. OMIDRIA [Concomitant]
     Active Substance: KETOROLAC\PHENYLEPHRINE
     Indication: Product used for unknown indication
     Dosage: ADDED TO THE BSS
     Route: 065
  11. PHENYLEPHRINE [Concomitant]
     Active Substance: PHENYLEPHRINE HYDROCHLORIDE
     Indication: Preoperative care
     Dosage: UNK
     Route: 065
  12. PREDNISOLONE [Concomitant]
     Active Substance: PREDNISOLONE
     Indication: Postoperative care
     Dosage: UNK, QID RIGHT EYE
     Route: 047
  13. PROPARACAINE [Concomitant]
     Active Substance: PROPARACAINE
     Indication: Preoperative care
     Dosage: RIGHT EYE
     Route: 047
  14. TROPICAMIDE [Concomitant]
     Active Substance: TROPICAMIDE
     Indication: Preoperative care
     Dosage: RIGHT EYE
     Route: 047
  15. VANCOMYCIN [Concomitant]
     Active Substance: VANCOMYCIN
     Indication: Product used for unknown indication
     Dosage: UNK
     Route: 031

REACTIONS (2)
  - Bacterial endophthalmitis [Recovering/Resolving]
  - Wrong technique in product usage process [Unknown]

NARRATIVE: CASE EVENT DATE: 20231026
